FAERS Safety Report 5676564-7 (Version None)
Quarter: 2008Q1

REPORT INFORMATION
  Report Type: 
  Country: None (occurrence: None)
  Receive Date: 20080318
  Receipt Date: 20080228
  Transmission Date: 20080703
  Serious: Yes (Hospitalization, Other)
  Sender: FDA-Public Use
  Company Number: S08-AUT-00459-01

PATIENT
  Age: 54 Year
  Sex: Female

DRUGS (2)
  1. ESCITALOPRAM [Suspect]
     Dosage: 10 MG QD PO
     Route: 048
     Dates: start: 20071210, end: 20071213
  2. RISPERDAL [Suspect]
     Dosage: 3 MG QD PO
     Route: 048
     Dates: start: 20071209, end: 20071212

REACTIONS (1)
  - EYELID OEDEMA [None]
